FAERS Safety Report 21633174 (Version 4)
Quarter: 2022Q4

REPORT INFORMATION
  Report Type: Report from Study
  Country: NL (occurrence: NL)
  Receive Date: 20221123
  Receipt Date: 20221227
  Transmission Date: 20230113
  Serious: Yes (Hospitalization)
  Sender: FDA-Public Use
  Company Number: NL-PFIZER INC-PV202200105891

PATIENT
  Age: 74 Year
  Sex: Female
  Weight: 66.2 kg

DRUGS (7)
  1. BINIMETINIB [Suspect]
     Active Substance: BINIMETINIB
     Indication: Non-small cell lung cancer
     Dosage: 30 MG, TWICE DAILY CONTINUOUS
     Route: 048
     Dates: start: 20201008, end: 20221101
  2. ENCORAFENIB [Suspect]
     Active Substance: ENCORAFENIB
     Indication: Non-small cell lung cancer
     Dosage: 450 MG, ONCE DAILY CONTINUOUS
     Route: 048
     Dates: start: 20201008
  3. CALCIUM CARBONATE [Concomitant]
     Active Substance: CALCIUM CARBONATE
     Dosage: 1.25 G, 1X/DAY
     Route: 048
     Dates: start: 20200921
  4. ACENOCOUMAROL [Concomitant]
     Active Substance: ACENOCOUMAROL
     Indication: Thrombosis
     Dosage: 1 MG, AS NEEDED
     Route: 048
     Dates: start: 20200921
  5. METOPROLOL [Concomitant]
     Active Substance: METOPROLOL
     Indication: Atrial fibrillation
     Dosage: 100 MG, 1X/DAY
     Route: 048
     Dates: start: 20201008, end: 20221104
  6. METOPROLOL [Concomitant]
     Active Substance: METOPROLOL
     Dosage: 150 MG, QD
     Route: 048
     Dates: start: 20221104
  7. SOTALOL [Concomitant]
     Active Substance: SOTALOL
     Indication: Atrial fibrillation
     Dosage: 80 MG, TID
     Route: 048
     Dates: start: 2020, end: 20201008

REACTIONS (1)
  - Atrial fibrillation [Recovered/Resolved]

NARRATIVE: CASE EVENT DATE: 20221104
